FAERS Safety Report 25101462 (Version 2)
Quarter: 2025Q2

REPORT INFORMATION
  Report Type: Report from Study
  Country: CA (occurrence: CA)
  Receive Date: 20250320
  Receipt Date: 20250425
  Transmission Date: 20250717
  Serious: Yes (Other)
  Sender: TAKEDA
  Company Number: CA-TAKEDA-2025TUS023694

PATIENT
  Sex: Female

DRUGS (3)
  1. VEDOLIZUMAB [Suspect]
     Active Substance: VEDOLIZUMAB
     Indication: Colitis ulcerative
  2. STELARA [Concomitant]
     Active Substance: USTEKINUMAB
  3. Salofalk [Concomitant]
     Indication: Colitis
     Dosage: UNK UNK, QID

REACTIONS (2)
  - Haematochezia [Unknown]
  - Faeces discoloured [Unknown]
